FAERS Safety Report 19201139 (Version 1)
Quarter: 2021Q2

REPORT INFORMATION
  Report Type: Spontaneous
  Country: US (occurrence: US)
  Receive Date: 20210430
  Receipt Date: 20210430
  Transmission Date: 20210717
  Serious: No
  Sender: FDA-Public Use
  Company Number: US-PFIZER INC-2021365264

PATIENT
  Age: 68 Year
  Sex: Male
  Weight: 64.4 kg

DRUGS (1)
  1. BOSULIF [Suspect]
     Active Substance: BOSUTINIB MONOHYDRATE
     Indication: CHRONIC MYELOID LEUKAEMIA
     Dosage: 400 MG, 1X/DAY(TAKE 1 TABLET DAILY)
     Route: 048
     Dates: start: 20201026

REACTIONS (1)
  - Diarrhoea [Unknown]
